FAERS Safety Report 14431916 (Version 2)
Quarter: 2018Q2

REPORT INFORMATION
  Report Type: Report from Study
  Country: None (occurrence: US)
  Receive Date: 20180124
  Receipt Date: 20180406
  Transmission Date: 20180711
  Serious: Yes (Hospitalization)
  Sender: FDA-Public Use
  Company Number: US-ABBVIE-18P-163-2231510-00

PATIENT
  Age: 33 Year
  Sex: Male
  Weight: 93.07 kg

DRUGS (1)
  1. CREON [Suspect]
     Active Substance: PANCRELIPASE AMYLASE\PANCRELIPASE LIPASE\PANCRELIPASE PROTEASE
     Indication: PANCREATITIS CHRONIC
     Dosage: 6 CAPSULES PER DAY
     Route: 048
     Dates: start: 201610

REACTIONS (8)
  - Pancreatic cyst [Recovered/Resolved]
  - Abdominal pain [Recovered/Resolved]
  - Abdominal pain [Recovered/Resolved]
  - Vomiting [Not Recovered/Not Resolved]
  - Peripancreatic fluid collection [Recovered/Resolved]
  - Device issue [Recovered/Resolved]
  - Pancreatic cyst [Recovered/Resolved]
  - Peripancreatic fluid collection [Recovered/Resolved]

NARRATIVE: CASE EVENT DATE: 201707
